FAERS Safety Report 16531058 (Version 29)
Quarter: 2021Q4

REPORT INFORMATION
  Report Type: Report from Study
  Country: CO (occurrence: CO)
  Receive Date: 20190704
  Receipt Date: 20211225
  Transmission Date: 20220303
  Serious: Yes (Hospitalization, Other)
  Sender: FDA-Public Use
  Company Number: PHHY2019CO152637

PATIENT
  Age: 41 Year
  Sex: Male
  Weight: 98 kg

DRUGS (13)
  1. VOTRIENT [Suspect]
     Active Substance: PAZOPANIB HYDROCHLORIDE
     Indication: Metastatic renal cell carcinoma
     Dosage: 2 DF, Q24H  (2 OF 400 MG/ 800 MG)
     Route: 048
     Dates: start: 20190301, end: 20190330
  2. VOTRIENT [Suspect]
     Active Substance: PAZOPANIB HYDROCHLORIDE
     Dosage: 2 DF, QD (2 OF 400 MG/ 800 MG)
     Route: 048
     Dates: start: 20190528
  3. VOTRIENT [Suspect]
     Active Substance: PAZOPANIB HYDROCHLORIDE
     Dosage: 2 DF, QD (2 OF 400 MG/ 800 MG)
     Route: 048
     Dates: start: 20190618
  4. VOTRIENT [Suspect]
     Active Substance: PAZOPANIB HYDROCHLORIDE
     Dosage: UNK
     Route: 048
     Dates: end: 20190619
  5. VOTRIENT [Suspect]
     Active Substance: PAZOPANIB HYDROCHLORIDE
     Dosage: UNK
     Route: 048
     Dates: start: 20190805
  6. VOTRIENT [Suspect]
     Active Substance: PAZOPANIB HYDROCHLORIDE
     Dosage: UNK
     Route: 048
  7. VOTRIENT [Suspect]
     Active Substance: PAZOPANIB HYDROCHLORIDE
     Dosage: 800 MG, QD (FOR 15 DAY)
     Route: 065
  8. VOTRIENT [Suspect]
     Active Substance: PAZOPANIB HYDROCHLORIDE
     Dosage: 400 MG, QD (FOR 15 DAY)
     Route: 065
  9. VOTRIENT [Suspect]
     Active Substance: PAZOPANIB HYDROCHLORIDE
     Dosage: 800 MG, QD
     Route: 048
  10. METFORMIN [Suspect]
     Active Substance: METFORMIN HYDROCHLORIDE
     Indication: Diabetes mellitus
     Dosage: 850 MG, Q12H
     Route: 065
     Dates: start: 20170202
  11. LOSARTAN [Suspect]
     Active Substance: LOSARTAN
     Indication: Hypertension
     Dosage: 50 MG, Q12H
     Route: 065
     Dates: start: 20170202
  12. AMLODIPINE [Suspect]
     Active Substance: AMLODIPINE BESYLATE
     Indication: Prophylaxis
     Dosage: 10 MG, QD (ONCE EVERY 24 HOURS)
     Route: 065
     Dates: start: 20170202
  13. TRADJENTA [Concomitant]
     Active Substance: LINAGLIPTIN
     Indication: Diabetes mellitus
     Dosage: 5 MG, Q12H
     Route: 065
     Dates: start: 20170701

REACTIONS (44)
  - Impaired healing [Unknown]
  - Haemorrhage [Unknown]
  - Hypoaesthesia oral [Unknown]
  - Cyst [Unknown]
  - Tooth injury [Recovered/Resolved]
  - Abscess oral [Recovered/Resolved]
  - Abscess oral [Recovered/Resolved]
  - Abscess oral [Recovered/Resolved]
  - Subcutaneous abscess [Unknown]
  - Skin atrophy [Unknown]
  - Burning sensation [Unknown]
  - Blister [Unknown]
  - Hyperkeratosis [Unknown]
  - Skin hypopigmentation [Unknown]
  - Sensitive skin [Unknown]
  - Skin haemorrhage [Unknown]
  - Skin disorder [Unknown]
  - Gastrointestinal disorder [Unknown]
  - Drug intolerance [Unknown]
  - Skin discolouration [Unknown]
  - Paronychia [Unknown]
  - Nodule [Unknown]
  - Tumour marker increased [Unknown]
  - Blood triglycerides increased [Unknown]
  - Gastritis [Unknown]
  - Pain [Unknown]
  - Abdominal discomfort [Unknown]
  - Gait disturbance [Unknown]
  - Skin exfoliation [Unknown]
  - Malaise [Unknown]
  - Back pain [Unknown]
  - Nausea [Unknown]
  - Diarrhoea [Unknown]
  - Abdominal pain [Unknown]
  - Furuncle [Unknown]
  - Carbuncle [Unknown]
  - Blood pressure increased [Unknown]
  - Dry skin [Unknown]
  - Abdominal pain upper [Unknown]
  - Flatulence [Unknown]
  - COVID-19 [Unknown]
  - Pyrexia [Unknown]
  - Headache [Unknown]
  - Off label use [Unknown]

NARRATIVE: CASE EVENT DATE: 20190405
